FAERS Safety Report 19646711 (Version 2)
Quarter: 2021Q3

REPORT INFORMATION
  Report Type: Spontaneous
  Country: CN (occurrence: CN)
  Receive Date: 20210802
  Receipt Date: 20210818
  Transmission Date: 20211014
  Serious: Yes (Other)
  Sender: FDA-Public Use
  Company Number: CN-ROCHE-2881489

PATIENT
  Sex: Male

DRUGS (5)
  1. GAVRETO [Suspect]
     Active Substance: PRALSETINIB
     Indication: LUNG NEOPLASM MALIGNANT
     Route: 048
     Dates: start: 20210618, end: 20210715
  2. GAVRETO [Suspect]
     Active Substance: PRALSETINIB
     Indication: LUNG ADENOCARCINOMA STAGE IV
     Route: 048
     Dates: start: 20210618, end: 20210715
  3. GAVRETO [Suspect]
     Active Substance: PRALSETINIB
     Route: 048
     Dates: start: 20210716, end: 20210809
  4. OSIMERTINIB. [Suspect]
     Active Substance: OSIMERTINIB
     Indication: LUNG NEOPLASM MALIGNANT
     Route: 048
     Dates: start: 20210618
  5. OSIMERTINIB. [Suspect]
     Active Substance: OSIMERTINIB
     Route: 048
     Dates: start: 201811

REACTIONS (4)
  - Face oedema [Recovered/Resolved]
  - Oedema peripheral [Not Recovered/Not Resolved]
  - Myocardial infarction [Unknown]
  - Pyrexia [Unknown]

NARRATIVE: CASE EVENT DATE: 20210716
